FAERS Safety Report 18841616 (Version 1)
Quarter: 2021Q1

REPORT INFORMATION
  Report Type: Report from Study
  Country: None (occurrence: US)
  Receive Date: 20210204
  Receipt Date: 20210204
  Transmission Date: 20210419
  Serious: Yes (Hospitalization)
  Sender: FDA-Public Use
  Company Number: US-ABBVIE-21P-163-3748885-00

PATIENT
  Age: 73 Year
  Sex: Male

DRUGS (3)
  1. VENETOCLAX. [Suspect]
     Active Substance: VENETOCLAX
     Indication: B-CELL LYMPHOMA
     Dosage: LAST CYCLE NO: C6; CYCLES 1 ? 6
     Route: 048
     Dates: start: 20180412, end: 20180908
  2. BENDAMUSTINE [Concomitant]
     Active Substance: BENDAMUSTINE
     Indication: B-CELL LYMPHOMA
     Dosage: LAST CYCLE NO: C6; CYCLES 1 ? 6
     Dates: start: 20180412, end: 20180831
  3. OBINUTUZUMAB. [Concomitant]
     Active Substance: OBINUTUZUMAB
     Indication: B-CELL LYMPHOMA
     Dosage: LAST CYCLE NO: C6; CYCLES 1 ? 6
     Route: 042
     Dates: start: 20180412, end: 20190912

REACTIONS (1)
  - Polyomavirus-associated nephropathy [Recovered/Resolved with Sequelae]

NARRATIVE: CASE EVENT DATE: 20210108
